FAERS Safety Report 7860965-2 (Version None)
Quarter: 2011Q4

REPORT INFORMATION
  Report Type: 
  Country: None (occurrence: None)
  Receive Date: 20111027
  Receipt Date: 20111021
  Transmission Date: 20120403
  Serious: Yes (Death, Hospitalization, Other)
  Sender: FDA-Public Use
  Company Number: CA-GLAXOSMITHKLINE-A0856238A

PATIENT
  Sex: Female

DRUGS (7)
  1. BONEFOS [Concomitant]
     Route: 065
  2. RAMIPRIL [Concomitant]
     Route: 065
  3. ADALAT [Concomitant]
     Route: 065
  4. XELODA [Suspect]
     Indication: BREAST CANCER METASTATIC
     Route: 065
  5. BONEFOS [Concomitant]
     Route: 065
  6. TYKERB [Suspect]
     Indication: BREAST CANCER METASTATIC
     Dosage: 1250MG PER DAY
     Route: 048
     Dates: start: 20100202, end: 20100801
  7. COLACE [Concomitant]
     Route: 065

REACTIONS (11)
  - DEATH [None]
  - NEOPLASM MALIGNANT [None]
  - BLISTER [None]
  - PALPITATIONS [None]
  - CARDIAC FLUTTER [None]
  - ERYTHEMA [None]
  - ONYCHOMADESIS [None]
  - BRAIN NEOPLASM [None]
  - PAIN IN EXTREMITY [None]
  - LOCALISED INFECTION [None]
  - DYSPNOEA [None]
